FAERS Safety Report 6030923-1 (Version None)
Quarter: 2009Q1

REPORT INFORMATION
  Report Type: 
  Country: None (occurrence: None)
  Receive Date: 20090106
  Receipt Date: 20081222
  Transmission Date: 20090719
  Serious: Yes (Other)
  Sender: FDA-Public Use
  Company Number: 2008S1022991

PATIENT
  Age: 67 Year
  Sex: Female

DRUGS (4)
  1. BYSTOLIC [Suspect]
     Indication: HYPERTENSION
     Dosage: 5 MG; DAILY; ORAL
     Route: 048
     Dates: start: 20080917
  2. PEPCID AC [Suspect]
     Dosage: ORAL
     Route: 048
  3. BACTRIM [Suspect]
     Indication: CYSTITIS
     Dosage: ORAL
     Route: 048
     Dates: start: 20081210
  4. ZITHROMAX [Suspect]
     Indication: CYSTITIS
     Dosage: ORAL
     Route: 048
     Dates: start: 20081210

REACTIONS (7)
  - ABDOMINAL PAIN UPPER [None]
  - BLOOD PRESSURE INCREASED [None]
  - CYSTITIS [None]
  - DRUG INTERACTION [None]
  - HEADACHE [None]
  - MEDICATION ERROR [None]
  - VOMITING [None]
